FAERS Safety Report 10264566 (Version 4)
Quarter: 2025Q1

REPORT INFORMATION
  Report Type: Spontaneous
  Country: US (occurrence: US)
  Receive Date: 20250226
  Receipt Date: 20250226
  Transmission Date: 20250409
  Serious: Yes (Other)
  Sender: AMGEN
  Company Number: US-AMGEN-USASP2013081332

PATIENT
  Age: 7 Month
  Sex: Female
  Weight: 9.039 kg

DRUGS (3)
  1. ENBREL [Suspect]
     Active Substance: ETANERCEPT
     Indication: Product used for unknown indication
     Route: 064
  2. ENBREL [Suspect]
     Active Substance: ETANERCEPT
     Route: 063
  3. ACYCLOVIR [Concomitant]
     Active Substance: ACYCLOVIR
     Indication: Herpes virus infection
     Dosage: 400 MILLIGRAM, QD
     Route: 064
     Dates: start: 201301

REACTIONS (8)
  - Ear tube insertion [Unknown]
  - Otorrhoea [Unknown]
  - Cough [Unknown]
  - Drug hypersensitivity [Unknown]
  - Urticaria [Unknown]
  - Respiratory syncytial virus infection [Unknown]
  - Ear infection [Unknown]
  - Exposure via breast milk [Unknown]

NARRATIVE: CASE EVENT DATE: 20130101
